FAERS Safety Report 17641434 (Version 1)
Quarter: 2020Q2

REPORT INFORMATION
  Report Type: Spontaneous
  Country: US (occurrence: US)
  Receive Date: 20200407
  Receipt Date: 20200407
  Transmission Date: 20200713
  Serious: No
  Sender: FDA-Public Use
  Company Number: US-BAUSCH-BL-2020-009978

PATIENT
  Sex: Male

DRUGS (2)
  1. XIFAXAN [Suspect]
     Active Substance: RIFAXIMIN
     Dosage: STARTED 3 WEEKS AGO FROM THE REPORT AND PATIENT FIGURED OUT TO TAKE WITH FOOD WHICH HAD DONE
     Route: 065
     Dates: start: 202003
  2. XIFAXAN [Suspect]
     Active Substance: RIFAXIMIN
     Indication: PRODUCT USED FOR UNKNOWN INDICATION
     Dosage: HAD TAKEN XIFAXAN FOR OVER 4 TIMES
     Route: 065

REACTIONS (5)
  - Gastrointestinal sounds abnormal [Unknown]
  - Dyschezia [Not Recovered/Not Resolved]
  - Ill-defined disorder [Unknown]
  - Malaise [Not Recovered/Not Resolved]
  - Abdominal pain upper [Unknown]

NARRATIVE: CASE EVENT DATE: 202003
